FAERS Safety Report 20209884 (Version 1)
Quarter: 2021Q4

REPORT INFORMATION
  Report Type: Report from Study
  Country: ES (occurrence: None)
  Receive Date: 20211221
  Receipt Date: 20211221
  Transmission Date: 20220303
  Serious: Yes (Other)
  Sender: FDA-Public Use
  Company Number: ES-ROCHE-2922042

PATIENT

DRUGS (23)
  1. TOCILIZUMAB [Suspect]
     Active Substance: TOCILIZUMAB
     Indication: COVID-19 pneumonia
     Route: 042
     Dates: start: 20200401
  2. TOCILIZUMAB [Suspect]
     Active Substance: TOCILIZUMAB
     Indication: COVID-19
     Route: 042
     Dates: start: 20200820
  3. TOCILIZUMAB [Suspect]
     Active Substance: TOCILIZUMAB
     Route: 042
     Dates: start: 20200821
  4. CEFEPIME [Concomitant]
     Active Substance: CEFEPIME HYDROCHLORIDE
     Dates: start: 20200914, end: 20200924
  5. CEFUROXIME [Concomitant]
     Active Substance: CEFUROXIME
     Indication: Respiratory tract infection
     Dates: start: 20200828, end: 20200903
  6. CODEINE [Concomitant]
     Active Substance: CODEINE
     Indication: Cough
     Dates: start: 20200821, end: 20200822
  7. DEXKETOPROFEN [Concomitant]
     Active Substance: DEXKETOPROFEN
     Indication: Pyrexia
     Dates: start: 20200913, end: 20200915
  8. CISATRACURIUM [Concomitant]
     Active Substance: CISATRACURIUM
     Indication: Mechanical ventilation
     Dates: start: 20200901, end: 20200903
  9. DIAZEPAM [Concomitant]
     Active Substance: DIAZEPAM
     Indication: Anxiety
     Dates: start: 20200917, end: 20200923
  10. FUROSEMIDE [Concomitant]
     Active Substance: FUROSEMIDE
     Indication: Generalised oedema
     Dates: start: 20200916, end: 20201015
  11. LOPINAVIR\RITONAVIR [Concomitant]
     Active Substance: LOPINAVIR\RITONAVIR
     Indication: COVID-19
     Dates: start: 20200820, end: 20200821
  12. LORAZEPAM [Concomitant]
     Active Substance: LORAZEPAM
     Indication: Insomnia
     Dates: start: 20200925
  13. MESNA [Concomitant]
     Active Substance: MESNA
     Indication: Respiratory tract infection
     Dates: start: 20200922, end: 20201002
  14. METAMIZOL [Concomitant]
     Active Substance: METAMIZOLE SODIUM
     Indication: Pyrexia
     Dates: start: 20200915, end: 20200921
  15. METHYLPREDNISOLONE [Concomitant]
     Active Substance: METHYLPREDNISOLONE
     Indication: COVID-19
     Dates: start: 20200820, end: 20200921
  16. MIDAZOLAM [Concomitant]
     Active Substance: MIDAZOLAM
     Indication: Mechanical ventilation
     Dates: start: 20200821, end: 20200916
  17. ACETYLCYSTEINE [Concomitant]
     Active Substance: ACETYLCYSTEINE
     Dates: start: 20200823, end: 20200903
  18. NOREPINEPHRINE [Concomitant]
     Active Substance: NOREPINEPHRINE
     Indication: Hypotension
     Dates: start: 20200901, end: 20200903
  19. OMEPRAZOLE [Concomitant]
     Active Substance: OMEPRAZOLE
     Dates: start: 20201006
  20. PANTOPRAZOLE SODIUM [Concomitant]
     Active Substance: PANTOPRAZOLE SODIUM
     Dates: start: 20200821, end: 20201006
  21. ACETAMINOPHEN [Concomitant]
     Active Substance: ACETAMINOPHEN
     Indication: Pyrexia
     Dates: start: 20200914, end: 20200915
  22. PROPOFOL [Concomitant]
     Active Substance: PROPOFOL
     Indication: Mechanical ventilation
     Dates: start: 20200915, end: 20200919
  23. REMDESIVIR [Concomitant]
     Active Substance: REMDESIVIR
     Indication: COVID-19
     Dates: start: 20200820, end: 20200824

REACTIONS (1)
  - Device related bacteraemia [Recovered/Resolved]

NARRATIVE: CASE EVENT DATE: 20200913
